FAERS Safety Report 20442399 (Version 1)
Quarter: 2022Q1

REPORT INFORMATION
  Report Type: Spontaneous
  Country: US (occurrence: US)
  Receive Date: 20220208
  Receipt Date: 20220208
  Transmission Date: 20220424
  Serious: No
  Sender: FDA-Public Use
  Company Number: US-ALLERGAN-2127366US

PATIENT
  Sex: Female

DRUGS (2)
  1. VIIBRYD [Suspect]
     Active Substance: VILAZODONE HYDROCHLORIDE
     Indication: Depression
     Dosage: 40 MG, QD
     Route: 048
  2. VIIBRYD [Suspect]
     Active Substance: VILAZODONE HYDROCHLORIDE
     Dosage: 20 MG, QD
     Route: 048

REACTIONS (6)
  - Chest pain [Not Recovered/Not Resolved]
  - Malaise [Unknown]
  - Wrong technique in product usage process [Unknown]
  - Heart rate increased [Not Recovered/Not Resolved]
  - Sleep disorder [Not Recovered/Not Resolved]
  - Agitation [Not Recovered/Not Resolved]
